FAERS Safety Report 14845010 (Version 3)
Quarter: 2018Q2

REPORT INFORMATION
  Report Type: Report from Study
  Country: None (occurrence: CO)
  Receive Date: 20180504
  Receipt Date: 20180617
  Transmission Date: 20180711
  Serious: Yes (Hospitalization, Disabling)
  Sender: FDA-Public Use
  Company Number: CO-ABBVIE-18K-036-2342799-00

PATIENT
  Age: 59 Year
  Sex: Female

DRUGS (1)
  1. HUMIRA [Suspect]
     Active Substance: ADALIMUMAB
     Indication: RHEUMATOID ARTHRITIS
     Route: 058
     Dates: start: 20130520, end: 20180321

REACTIONS (14)
  - Cardiac disorder [Recovering/Resolving]
  - Kidney infection [Recovered/Resolved]
  - Rheumatoid arthritis [Recovering/Resolving]
  - Gait inability [Unknown]
  - Rash [Unknown]
  - Drug ineffective [Recovering/Resolving]
  - Immunodeficiency [Unknown]
  - Arthritis [Recovering/Resolving]
  - Kidney infection [Recovered/Resolved]
  - Rash pruritic [Unknown]
  - Arthralgia [Recovering/Resolving]
  - Pulmonary mass [Recovered/Resolved]
  - Kidney infection [Recovered/Resolved]
  - Cystitis [Recovering/Resolving]

NARRATIVE: CASE EVENT DATE: 2013
